FAERS Safety Report 8808598 (Version 2)
Quarter: 2012Q4

REPORT INFORMATION
  Report Type: 
  Country: US (occurrence: US)
  Receive Date: 20120926
  Receipt Date: 20121008
  Transmission Date: 20130627
  Serious: Yes (Other)
  Sender: FDA-Public Use
  Company Number: US-TEVA-360252USA

PATIENT
  Sex: Male

DRUGS (1)
  1. HYDROXYCARBAMIDE [Suspect]

REACTIONS (2)
  - Cerebrovascular accident [Unknown]
  - Deafness [Unknown]
